FAERS Safety Report 10136849 (Version 1)
Quarter: 2014Q2

REPORT INFORMATION
  Report Type: Spontaneous
  Country: US (occurrence: None)
  Receive Date: 20140428
  Receipt Date: 20140428
  Transmission Date: 20141212
  Serious: Yes (Hospitalization)
  Sender: FDA-Public Use
  Company Number: None

PATIENT
  Age: 80 Year
  Sex: Male

DRUGS (1)
  1. FORTEO 600MCG/2.4ML PEN [Suspect]
     Indication: OSTEOPOROSIS
     Dosage: INJECT 20MCG SUBCUTANEOUSLY DAILY.
     Route: 058
     Dates: start: 20140210, end: 20140327

REACTIONS (3)
  - Blood pressure increased [None]
  - Incoherent [None]
  - Body temperature increased [None]
